FAERS Safety Report 9057773 (Version 2)
Quarter: 2013Q1

REPORT INFORMATION
  Report Type: Spontaneous
  Country: US (occurrence: US)
  Receive Date: 20130204
  Receipt Date: 20130214
  Transmission Date: 20140127
  Serious: Yes (Other)
  Sender: FDA-Public Use
  Company Number: US-ASTRAZENECA-2013SE05861

PATIENT
  Sex: Female
  Weight: 52.2 kg

DRUGS (7)
  1. ATACAND [Suspect]
     Indication: BLOOD PRESSURE ABNORMAL
     Route: 048
  2. ATACAND [Suspect]
     Indication: BLOOD PRESSURE ABNORMAL
     Route: 048
  3. ATACAND [Suspect]
     Indication: BLOOD PRESSURE ABNORMAL
     Route: 048
  4. ATACAND [Suspect]
     Indication: BLOOD PRESSURE ABNORMAL
     Route: 048
  5. ATACAND HCT [Suspect]
     Indication: BLOOD PRESSURE ABNORMAL
     Route: 048
  6. ATACAND HCT [Suspect]
     Indication: BLOOD PRESSURE ABNORMAL
     Route: 048
  7. AVASTIN [Suspect]
     Indication: CHEMOTHERAPY
     Route: 065

REACTIONS (5)
  - Metastases to lung [Unknown]
  - Colon cancer metastatic [Unknown]
  - Blood pressure inadequately controlled [Not Recovered/Not Resolved]
  - Off label use [Unknown]
  - Drug ineffective [Unknown]
